FAERS Safety Report 25489957 (Version 1)
Quarter: 2025Q2

REPORT INFORMATION
  Report Type: Spontaneous
  Country: CN (occurrence: CN)
  Receive Date: 20250628
  Receipt Date: 20250628
  Transmission Date: 20250716
  Serious: Yes (Hospitalization)
  Sender: ACCORD
  Company Number: None

PATIENT
  Age: 71 Year
  Sex: Male
  Weight: 70 kg

DRUGS (8)
  1. TRASTUZUMAB [Suspect]
     Active Substance: TRASTUZUMAB
     Indication: Gastric cancer
     Dosage: STRENGTH: 150 MG, 560 MILLIGRAM, QD
     Dates: start: 20250605, end: 20250605
  2. CAPECITABINE [Suspect]
     Active Substance: CAPECITABINE
     Indication: Gastric cancer
     Dosage: 1500 MILLIGRAM, Q3W, TWICE DAILY (BID), FROM DAY 1 TO DAY 14 OF EACH CYCLE (D1-14)
     Route: 048
     Dates: start: 20250423
  3. CISPLATIN [Suspect]
     Active Substance: CISPLATIN
     Indication: Gastric cancer
     Dosage: 40 MILLIGRAM, Q3W, D1-3
     Dates: start: 20250423
  4. CISPLATIN [Suspect]
     Active Substance: CISPLATIN
     Indication: Gastric cancer
     Dosage: 40 MILLIGRAM, QD
     Dates: start: 20250515, end: 20250518
  5. CISPLATIN [Suspect]
     Active Substance: CISPLATIN
     Indication: Gastric cancer
     Dosage: 40 MILLIGRAM, QD, D1-3
     Dates: start: 20250605, end: 20250605
  6. CAPECITABINE [Suspect]
     Active Substance: CAPECITABINE
     Indication: Gastric cancer
     Dosage: 1500 MILLIGRAM, Q3W, TWICE DAILY (BID), FROM DAY 1 TO DAY 14 OF EACH CYCLE (D1-14)
     Route: 048
     Dates: start: 20250515, end: 20250529
  7. CAPECITABINE [Suspect]
     Active Substance: CAPECITABINE
     Indication: Gastric cancer
     Dosage: 1500 MILLIGRAM, Q3W, TWICE DAILY (BID), FROM DAY 1 TO DAY 14 OF EACH CYCLE (D1-14)
     Route: 048
     Dates: start: 20250605
  8. TRASTUZUMAB [Suspect]
     Active Substance: TRASTUZUMAB
     Indication: Gastric cancer
     Dosage: STRENGTH: 150 MG, 560 MILLIGRAM, QD
     Dates: start: 20250515, end: 20250515

REACTIONS (1)
  - Myelosuppression [Recovering/Resolving]
